FAERS Safety Report 7054611-8 (Version None)
Quarter: 2010Q4

REPORT INFORMATION
  Report Type: 
  Country: None (occurrence: None)
  Receive Date: 20101015
  Receipt Date: 20100929
  Transmission Date: 20110411
  Serious: Yes (Disabling)
  Sender: FDA-Public Use
  Company Number: ACO_02475_2010

PATIENT
  Sex: Female
  Weight: 86.1834 kg

DRUGS (10)
  1. AMPYRA [Suspect]
     Indication: MUSCULAR WEAKNESS
     Dosage: (10 MG BID ORAL)
     Route: 048
     Dates: start: 20100801, end: 20100916
  2. NEURONTIN [Concomitant]
  3. LISINOPRIL [Concomitant]
  4. EFFEXOR XR [Concomitant]
  5. VITAMIN E /00110501/ [Concomitant]
  6. CALCIUM [Concomitant]
  7. IRON [Concomitant]
  8. STOOL SOFTENER [Concomitant]
  9. VITAMIN A [Concomitant]
  10. MULTI-VITAMINS [Concomitant]

REACTIONS (3)
  - FALL [None]
  - HYPOAESTHESIA [None]
  - MENISCUS LESION [None]
